FAERS Safety Report 9735077 (Version 1)
Quarter: 2013Q4

REPORT INFORMATION
  Report Type: Spontaneous
  Country: US (occurrence: None)
  Receive Date: 20131204
  Receipt Date: 20131204
  Transmission Date: 20140711
  Serious: Yes (Death, Life-Threatening)
  Sender: FDA-Public Use
  Company Number: US-ALKEM-000241

PATIENT
  Age: 61 Year
  Sex: Female

DRUGS (1)
  1. METFORMIN (METFORMIN) [Suspect]
     Dosage: 1000.00-G-1.00 TIMES PER-, ORAL
     Route: 048

REACTIONS (13)
  - Respiratory failure [None]
  - Metabolic acidosis [None]
  - Hypotension [None]
  - Completed suicide [None]
  - Exposure via ingestion [None]
  - Nausea [None]
  - Vomiting [None]
  - Unresponsive to stimuli [None]
  - Haemodialysis [None]
  - Arteriosclerosis [None]
  - Pulmonary oedema [None]
  - Emphysema [None]
  - Toxicity to various agents [None]
